FAERS Safety Report 7395227-3 (Version None)
Quarter: 2011Q2

REPORT INFORMATION
  Report Type: 
  Country: None (occurrence: None)
  Receive Date: 20110405
  Receipt Date: 20110325
  Transmission Date: 20111010
  Serious: Yes (Death)
  Sender: FDA-Public Use
  Company Number: CZ-GENZYME-MOZO-1000498

PATIENT

DRUGS (2)
  1. MOZOBIL [Suspect]
     Indication: HAEMATOPOIETIC STEM CELL MOBILISATION
     Route: 065
  2. MOZOBIL [Suspect]
     Indication: NON-HODGKIN'S LYMPHOMA

REACTIONS (1)
  - NON-HODGKIN'S LYMPHOMA [None]
